FAERS Safety Report 6146952-3 (Version None)
Quarter: 2009Q2

REPORT INFORMATION
  Report Type: 
  Country: None (occurrence: None)
  Receive Date: 20090407
  Receipt Date: 20090323
  Transmission Date: 20091009
  Serious: Yes (Other)
  Sender: FDA-Public Use
  Company Number: KR-GENENTECH-280514

PATIENT

DRUGS (1)
  1. AVASTIN [Suspect]
     Indication: POLYPOIDAL CHOROIDAL VASCULOPATHY
     Dosage: 1.25 MG, UNK
     Route: 031

REACTIONS (3)
  - ANTERIOR CHAMBER DISORDER [None]
  - CONJUNCTIVAL HAEMORRHAGE [None]
  - VISUAL ACUITY REDUCED [None]
